FAERS Safety Report 6077806-9 (Version None)
Quarter: 2009Q1

REPORT INFORMATION
  Report Type: 
  Country: None (occurrence: None)
  Receive Date: 20090213
  Receipt Date: 20090210
  Transmission Date: 20090719
  Serious: Yes (Hospitalization)
  Sender: FDA-Public Use
  Company Number: CA-SANOFI-SYNTHELABO-F01200900136

PATIENT
  Sex: Female
  Weight: 54.5 kg

DRUGS (3)
  1. XELODA [Suspect]
     Dosage: 1300 MG
     Route: 048
     Dates: start: 20081013, end: 20081013
  2. AVASTIN [Suspect]
     Dosage: 265 MG
     Route: 042
     Dates: start: 20081007, end: 20081007
  3. ELOXATIN [Suspect]
     Indication: COLORECTAL CANCER
     Dosage: 78 MG
     Route: 042
     Dates: start: 20081007, end: 20081007

REACTIONS (1)
  - WOUND DEHISCENCE [None]
